FAERS Safety Report 4576392-X (Version None)
Quarter: 2005Q1

REPORT INFORMATION
  Report Type: 
  Country: None (occurrence: None)
  Receive Date: 20050207
  Receipt Date: 20050121
  Transmission Date: 20050727
  Serious: Yes (Life-Threatening, Hospitalization)
  Sender: FDA-Public Use
  Company Number: 8004653

PATIENT
  Age: 20 Year
  Sex: Female

DRUGS (3)
  1. KEPPRA [Suspect]
     Indication: EPILEPSY
     Dosage: PO
     Route: 048
  2. DEPAKENE [Suspect]
     Indication: EPILEPSY
     Dosage: PO
     Route: 048
  3. DEPAKENE [Suspect]
     Indication: EPILEPSY
     Dosage: ONCE PO
     Route: 048
     Dates: start: 20031106, end: 20031106

REACTIONS (7)
  - ANION GAP INCREASED [None]
  - COMA [None]
  - DIALYSIS [None]
  - HYPERAMMONAEMIA [None]
  - LACTIC ACIDOSIS [None]
  - OVERDOSE [None]
  - SUICIDE ATTEMPT [None]
